FAERS Safety Report 4945484-5 (Version None)
Quarter: 2006Q1

REPORT INFORMATION
  Report Type: 
  Country: None (occurrence: None)
  Receive Date: 20060315
  Receipt Date: 20060315
  Transmission Date: 20060701
  Serious: Yes (Life-Threatening, Hospitalization)
  Sender: FDA-Public Use
  Company Number: None

PATIENT
  Age: 69 Year
  Sex: Male

DRUGS (13)
  1. CETUXIMAB (MERCK AND CO) [Suspect]
     Indication: COLON CANCER METASTATIC
     Dosage: ONCE IV
     Route: 042
     Dates: start: 20050718, end: 20050718
  2. ONDANSETRON [Concomitant]
  3. DEXAMETHASONE TAB [Concomitant]
  4. DIPHENHYDRAMINE [Concomitant]
  5. DARBEPOETIN [Concomitant]
  6. ASPIRIN [Concomitant]
  7. MULTI-VITAMIN [Concomitant]
  8. FOLIC ACID [Concomitant]
  9. DIPHENOXYLATE [Concomitant]
  10. GEMFIBROZIL [Concomitant]
  11. INSULIN [Concomitant]
  12. LISINOPRIL [Concomitant]
  13. OMEPRAZOLE [Concomitant]

REACTIONS (6)
  - CARDIO-RESPIRATORY ARREST [None]
  - CONFUSIONAL STATE [None]
  - HYPOTENSION [None]
  - INFUSION RELATED REACTION [None]
  - LOSS OF CONSCIOUSNESS [None]
  - RESTLESSNESS [None]
